FAERS Safety Report 5195630-6 (Version None)
Quarter: 2007Q1

REPORT INFORMATION
  Report Type: 
  Country: None (occurrence: None)
  Receive Date: 20070102
  Receipt Date: 20061219
  Transmission Date: 20070707
  Serious: Yes (Other)
  Sender: FDA-Public Use
  Company Number: CA-NOVOPROD-257953

PATIENT
  Sex: Male
  Weight: 62 kg

DRUGS (3)
  1. NOVOSEVEN [Suspect]
     Indication: CEREBRAL HAEMORRHAGE
     Dosage: 20 UG/KG, UNK
     Route: 042
     Dates: start: 20061020, end: 20061020
  2. MIDAZOLAM HYDROCHLORIDE [Concomitant]
     Dosage: 2.5 MG, UNK
     Route: 042
     Dates: start: 20061020, end: 20061020
  3. FLUMAZENIL [Concomitant]
     Dosage: .3 MG, UNK
     Route: 042
     Dates: start: 20061020, end: 20061020

REACTIONS (3)
  - CEREBRAL HAEMORRHAGE [None]
  - COMA [None]
  - HYDROCEPHALUS [None]
